FAERS Safety Report 17047033 (Version 1)
Quarter: 2019Q4

REPORT INFORMATION
  Report Type: Report from Study
  Country: IT (occurrence: IT)
  Receive Date: 20191119
  Receipt Date: 20191119
  Transmission Date: 20200122
  Serious: Yes (Death, Other)
  Sender: FDA-Public Use
  Company Number: IT-JAZZ-2019-IT-015709

PATIENT
  Age: 56 Year
  Weight: 79 kg

DRUGS (1)
  1. DEFITELIO [Suspect]
     Active Substance: DEFIBROTIDE SODIUM
     Indication: VENOOCCLUSIVE DISEASE
     Dosage: UNK
     Route: 065
     Dates: start: 20191017, end: 20191101

REACTIONS (1)
  - Death [Fatal]
